FAERS Safety Report 11595989 (Version 1)
Quarter: 2015Q4

REPORT INFORMATION
  Report Type: Spontaneous
  Country: US (occurrence: US)
  Receive Date: 20151006
  Receipt Date: 20151006
  Transmission Date: 20160304
  Serious: No
  Sender: FDA-Public Use
  Company Number: US-PFIZER INC-2015321300

PATIENT
  Age: 52 Year
  Sex: Female

DRUGS (3)
  1. GABAPENTIN. [Suspect]
     Active Substance: GABAPENTIN
     Indication: PAIN
     Dosage: 600 MG (1 TABLET), 3X/DAY
     Route: 048
     Dates: start: 20150729, end: 20150911
  2. GABAPENTIN. [Suspect]
     Active Substance: GABAPENTIN
     Indication: PAIN
     Dosage: 200 MG (2 CAPSULES), 3X/DAY AS NEEDED
     Route: 048
     Dates: end: 20150103
  3. GABAPENTIN. [Suspect]
     Active Substance: GABAPENTIN
     Dosage: 200 MG (2 CAPSULES), 3X/DAY
     Dates: start: 20150130, end: 20150729

REACTIONS (2)
  - Product use issue [Unknown]
  - Drug hypersensitivity [Unknown]
